FAERS Safety Report 6050355-X (Version None)
Quarter: 2009Q1

REPORT INFORMATION
  Report Type: 
  Country: None (occurrence: None)
  Receive Date: 20090121
  Receipt Date: 20090113
  Transmission Date: 20090719
  Serious: Yes (Hospitalization)
  Sender: FDA-Public Use
  Company Number: TPA2009A00048

PATIENT
  Sex: Male

DRUGS (2)
  1. ACTOPLUS MET [Suspect]
     Indication: DIABETES MELLITUS
     Dosage: PER ORAL
     Route: 048
     Dates: start: 20080101
  2. METFORMIN HCL [Concomitant]

REACTIONS (1)
  - ANGIOEDEMA [None]
